FAERS Safety Report 7476511 (Version 2)
Quarter: 2015Q1

REPORT INFORMATION
  Report Type: Report from Study
  Country: PR (occurrence: PR)
  Receive Date: 20100715
  Receipt Date: 20150305
  Transmission Date: 20150721
  Serious: Yes (Other)
  Sender: FDA-Public Use
  Company Number: PR-ROCHE-712266

PATIENT
  Age: 27 Year
  Sex: Female

DRUGS (3)
  1. METHOTREXATE [Suspect]
     Active Substance: METHOTREXATE
     Indication: RHEUMATOID ARTHRITIS
     Dosage: DOSE: 10-25 MG, ROUTE: ORAL OR PARENTERAL, DOSE AND FREQUENCY REPORTED FROM PROTOCOL.
     Route: 065
  2. TOCILIZUMAB [Suspect]
     Active Substance: TOCILIZUMAB
     Indication: RHEUMATOID ARTHRITIS
     Dosage: FREQUENCY: QM
     Route: 042
  3. PLACEBO [Suspect]
     Active Substance: UNSPECIFIED INGREDIENT
     Indication: RHEUMATOID ARTHRITIS
     Route: 042
     Dates: start: 20060516, end: 20080416

REACTIONS (1)
  - Abortion induced [Unknown]

NARRATIVE: CASE EVENT DATE: 20100701
